FAERS Safety Report 18817362 (Version 1)
Quarter: 2021Q1

REPORT INFORMATION
  Report Type: Report from Study
  Country: BR (occurrence: BR)
  Receive Date: 20210201
  Receipt Date: 20210201
  Transmission Date: 20210419
  Serious: Yes (Hospitalization)
  Sender: FDA-Public Use
  Company Number: BR-ELI_LILLY_AND_COMPANY-BR202101010838

PATIENT
  Sex: Female

DRUGS (2)
  1. VERZENIOS [Suspect]
     Active Substance: ABEMACICLIB
     Indication: BREAST CANCER METASTATIC
     Dosage: 150 MG, DAILY
     Route: 048
     Dates: start: 20201230
  2. VERZENIOS [Suspect]
     Active Substance: ABEMACICLIB
     Dosage: 150 MG, BID
     Route: 048
     Dates: start: 20201230

REACTIONS (5)
  - Diarrhoea [Unknown]
  - Eating disorder [Unknown]
  - Vomiting [Unknown]
  - Abdominal pain [Unknown]
  - Blood electrolytes decreased [Unknown]
